FAERS Safety Report 9150591 (Version 1)
Quarter: 2013Q1

REPORT INFORMATION
  Report Type: Spontaneous
  Country: US (occurrence: None)
  Receive Date: 20130201
  Receipt Date: 20130201
  Transmission Date: 20140127
  Serious: Yes (Other)
  Sender: FDA-Public Use
  Company Number: DSA_47547_2011

PATIENT
  Age: 79 Year
  Sex: Female
  Weight: 65.32 kg

DRUGS (1)
  1. XENAZINE 12.5 MG (NOT SPECIFIED) [Suspect]
     Dosage: 6.25 MG AT 9AM AND AT 2PM ORAL
     Route: 048
     Dates: start: 20110406

REACTIONS (3)
  - Ovarian cancer [None]
  - Carpal tunnel syndrome [None]
  - Burning sensation [None]
